FAERS Safety Report 6686547-6 (Version None)
Quarter: 2010Q2

REPORT INFORMATION
  Report Type: 
  Country: None (occurrence: None)
  Receive Date: 20100419
  Receipt Date: 20100413
  Transmission Date: 20101027
  Serious: Yes (Death)
  Sender: FDA-Public Use
  Company Number: BR-ROCHE-697073

PATIENT
  Sex: Male

DRUGS (4)
  1. CLONAZEPAM [Suspect]
     Indication: DRUG USE FOR UNKNOWN INDICATION
     Route: 065
  2. EXELON [Concomitant]
     Dosage: INDICATION; MEMORY
     Dates: start: 19990101
  3. NEULEPTIL [Concomitant]
     Dates: start: 19990101
  4. DICLOFENAC SODIUM [Concomitant]
     Indication: BACK PAIN
     Dates: start: 20070101

REACTIONS (1)
  - LUNG CANCER METASTATIC [None]
